FAERS Safety Report 8223343-2 (Version None)
Quarter: 2012Q1

REPORT INFORMATION
  Report Type: 
  Country: None (occurrence: None)
  Receive Date: 20120314
  Receipt Date: 20120229
  Transmission Date: 20120608
  Serious: Yes (Other)
  Sender: FDA-Public Use
  Company Number: 2012SP012002

PATIENT
  Age: 53 Year
  Sex: Male
  Weight: 68.2 kg

DRUGS (2)
  1. REBETOL [Suspect]
     Indication: HEPATITIS C
     Dosage: 200 MG, BID, PO
     Route: 048
     Dates: start: 20061019, end: 20070405
  2. PEG-INTRON [Suspect]
     Indication: HEPATITIS C
     Dosage: SC
     Route: 058

REACTIONS (2)
  - LYMPHOPROLIFERATIVE DISORDER [None]
  - IMMUNE SYSTEM DISORDER [None]
